FAERS Safety Report 13268825 (Version 2)
Quarter: 2017Q1

REPORT INFORMATION
  Report Type: Spontaneous
  Country: US (occurrence: US)
  Receive Date: 20170224
  Receipt Date: 20170308
  Transmission Date: 20170428
  Serious: No
  Sender: FDA-Public Use
  Company Number: US-BAYER-2017-035266

PATIENT
  Age: 37 Year
  Sex: Male
  Weight: 72.57 kg

DRUGS (1)
  1. CIPRO [Suspect]
     Active Substance: CIPROFLOXACIN HYDROCHLORIDE
     Indication: PROSTATITIS
     Dosage: 500 MG 2/X
     Dates: start: 201611, end: 201611

REACTIONS (9)
  - Insomnia [None]
  - Back pain [Not Recovered/Not Resolved]
  - Mitochondrial enzyme deficiency [Not Recovered/Not Resolved]
  - Muscular weakness [Not Recovered/Not Resolved]
  - Depression [None]
  - Panic attack [None]
  - Anxiety [Not Recovered/Not Resolved]
  - Panic disorder [Not Recovered/Not Resolved]
  - Mental disability [Not Recovered/Not Resolved]

NARRATIVE: CASE EVENT DATE: 201611
